FAERS Safety Report 5941980-2 (Version None)
Quarter: 2008Q4

REPORT INFORMATION
  Report Type: 
  Country: None (occurrence: None)
  Receive Date: 20081105
  Receipt Date: 20081029
  Transmission Date: 20090506
  Serious: Yes (Hospitalization, Other)
  Sender: FDA-Public Use
  Company Number: US-MERCK-0605USA04315

PATIENT
  Age: 67 Year
  Sex: Female
  Weight: 66 kg

DRUGS (5)
  1. FOSAMAX [Suspect]
     Indication: OSTEOPOROSIS PROPHYLAXIS
     Route: 048
     Dates: start: 19970409
  2. FOSAMAX [Suspect]
     Route: 048
     Dates: end: 20050801
  3. VITAMINS (UNSPECIFIED) [Concomitant]
     Route: 065
  4. ASPIRIN [Concomitant]
     Route: 065
  5. DAYPRO [Concomitant]
     Route: 065

REACTIONS (18)
  - ABSCESS [None]
  - BLOOD URINE PRESENT [None]
  - BONE EROSION [None]
  - CERUMEN IMPACTION [None]
  - DRUG HYPERSENSITIVITY [None]
  - DYSGEUSIA [None]
  - EAR PAIN [None]
  - GASTROENTERITIS [None]
  - GINGIVAL DISORDER [None]
  - HYPERTENSION [None]
  - MUSCULOSKELETAL PAIN [None]
  - NECK PAIN [None]
  - OEDEMA MOUTH [None]
  - ORAL PAIN [None]
  - OSTEOMYELITIS [None]
  - OSTEONECROSIS [None]
  - OTITIS MEDIA CHRONIC [None]
  - TOOTH DISORDER [None]
